FAERS Safety Report 21965119 (Version 3)
Quarter: 2024Q4

REPORT INFORMATION
  Report Type: Spontaneous
  Country: DE (occurrence: DE)
  Receive Date: 20230207
  Receipt Date: 20241016
  Transmission Date: 20250114
  Serious: Yes (Hospitalization, Other)
  Sender: CELLTRION
  Company Number: DE-CELLTRION INC.-2023DE002572

PATIENT

DRUGS (16)
  1. RITUXIMAB [Suspect]
     Active Substance: RITUXIMAB
     Indication: ABO incompatibility
     Dosage: UNK
  2. RITUXIMAB [Suspect]
     Active Substance: RITUXIMAB
     Indication: Prophylaxis against transplant rejection
     Dosage: UNK
  3. RITUXIMAB [Suspect]
     Active Substance: RITUXIMAB
     Dosage: UNK
  4. MYCOPHENOLATE MOFETIL [Suspect]
     Active Substance: MYCOPHENOLATE MOFETIL
     Indication: Immunosuppressant drug therapy
  5. MYCOPHENOLATE MOFETIL [Suspect]
     Active Substance: MYCOPHENOLATE MOFETIL
     Indication: Immunosuppression
     Dosage: UNK
  6. MOLNUPIRAVIR [Suspect]
     Active Substance: MOLNUPIRAVIR
     Indication: Immunosuppressant drug therapy
  7. TACROLIMUS [Concomitant]
     Active Substance: TACROLIMUS
     Indication: Immunosuppressant drug therapy
  8. PREDNISONE [Concomitant]
     Active Substance: PREDNISONE
     Indication: Immunosuppressant drug therapy
  9. REMDESIVIR [Concomitant]
     Active Substance: REMDESIVIR
     Indication: Immunosuppressant drug therapy
  10. SOTROVIMAB [Concomitant]
     Active Substance: SOTROVIMAB
     Indication: Immunosuppressant drug therapy
  11. THYMOGLOBULIN [Concomitant]
     Active Substance: LAPINE T-LYMPHOCYTE IMMUNE GLOBULIN
     Dosage: 300 MG CUMULATIVE
     Route: 042
  12. PREDNISOLONE [Concomitant]
     Active Substance: PREDNISOLONE
     Dosage: CUMULATIVE DOSE OF 1 G OVER THREE DAYS
     Route: 042
  13. PREDNISOLONE [Concomitant]
     Active Substance: PREDNISOLONE
     Dosage: CUMULATIVE DOSE OF 60 G OVER THREE DAYS
     Route: 042
  14. PREDNISOLONE [Concomitant]
     Active Substance: PREDNISOLONE
     Dosage: 1 G CUMULATIVE
     Route: 042
  15. HUMAN IMMUNOGLOBULIN G [Concomitant]
     Active Substance: HUMAN IMMUNOGLOBULIN G
     Dosage: RENEWED IVIG
     Route: 042
  16. HUMAN IMMUNOGLOBULIN G [Concomitant]
     Active Substance: HUMAN IMMUNOGLOBULIN G
     Dosage: CUMULATIVE DOSE OF 60 G OVER THREE DAYS
     Route: 042

REACTIONS (5)
  - Renal transplant failure [Unknown]
  - COVID-19 pneumonia [Recovered/Resolved]
  - COVID-19 [Recovered/Resolved]
  - Immunosuppression [Unknown]
  - Off label use [Unknown]
